FAERS Safety Report 6544769-9 (Version None)
Quarter: 2010Q1

REPORT INFORMATION
  Report Type: 
  Country: None (occurrence: None)
  Receive Date: 20100121
  Receipt Date: 20100119
  Transmission Date: 20100710
  Serious: Yes (Other)
  Sender: FDA-Public Use
  Company Number: FR-BRISTOL-MYERS SQUIBB COMPANY-14937502

PATIENT
  Age: 65 Year
  Sex: Male

DRUGS (6)
  1. BICNU [Suspect]
     Indication: T-CELL LYMPHOMA
     Route: 003
     Dates: start: 20060101
  2. TARGRETIN [Suspect]
     Indication: T-CELL LYMPHOMA
     Dates: start: 20081101, end: 20090527
  3. ALDARA [Suspect]
     Indication: T-CELL LYMPHOMA
     Dosage: 5% CREAM
     Route: 003
     Dates: start: 20080101, end: 20090601
  4. EZETROL [Concomitant]
     Indication: DYSLIPIDAEMIA
     Route: 048
     Dates: start: 20080101
  5. LANZOR [Concomitant]
     Indication: GASTRITIS
     Route: 048
     Dates: start: 20080101
  6. LEVOTHYROXINE SODIUM [Concomitant]
     Indication: HYPOTHYROIDISM
     Route: 048
     Dates: start: 20080101

REACTIONS (3)
  - LOCALISED INFECTION [None]
  - NEUTROPENIA [None]
  - SKIN LESION [None]
